FAERS Safety Report 10232378 (Version 1)
Quarter: 2014Q2

REPORT INFORMATION
  Report Type: Spontaneous
  Country: US (occurrence: None)
  Receive Date: 20140610
  Receipt Date: 20140610
  Transmission Date: 20141212
  Serious: Yes (Hospitalization)
  Sender: FDA-Public Use
  Company Number: None

PATIENT
  Age: 51 Year
  Sex: Male
  Weight: 79.38 kg

DRUGS (7)
  1. STROMECTOL [Suspect]
     Indication: ACARODERMATITIS
     Dosage: 6 PILLULES + IV A WK TAKE 6 MORE
     Dates: start: 20130909, end: 20130923
  2. LYRICA [Concomitant]
  3. LAMICTAL [Concomitant]
  4. ABILIFY [Concomitant]
  5. MELOXICAM [Concomitant]
  6. SIMVASTATIN [Concomitant]
  7. DOC-Q-LACE [Concomitant]

REACTIONS (4)
  - Abasia [None]
  - Aphasia [None]
  - Blindness [None]
  - Disease recurrence [None]
